FAERS Safety Report 4293889-0 (Version None)
Quarter: 2004Q1

REPORT INFORMATION
  Report Type: 
  Country: None (occurrence: None)
  Receive Date: 20040211
  Receipt Date: 20040203
  Transmission Date: 20041129
  Serious: Yes (Death, Life-Threatening, Hospitalization, Other)
  Sender: FDA-Public Use
  Company Number: 2004005319

PATIENT
  Age: 49 Year
  Sex: Male
  Weight: 80 kg

DRUGS (5)
  1. MAGNEX (CEFOPERAZONE, SULBACTAM) [Suspect]
     Indication: SEPSIS
     Dosage: 2 GRAM (BID), INTRAVENOUS
     Route: 042
     Dates: start: 20030923, end: 20031006
  2. AUGMENTIN '500' [Concomitant]
  3. LINEZOLID (LINEZOLID) [Concomitant]
  4. OFLOXACIN HYDROCHLORIDE (OFLOXACIN HYDROCHLORIDE) [Concomitant]
  5. ALL OTHER THERAPEUTIC PRODUCTS [Concomitant]

REACTIONS (3)
  - COAGULOPATHY [None]
  - HAEMORRHAGE [None]
  - PLATELET COUNT DECREASED [None]
